FAERS Safety Report 6979248-8 (Version None)
Quarter: 2010Q3

REPORT INFORMATION
  Report Type: 
  Country: None (occurrence: None)
  Receive Date: 20100913
  Receipt Date: 20100906
  Transmission Date: 20110219
  Serious: Yes (Life-Threatening, Hospitalization)
  Sender: FDA-Public Use
  Company Number: JP-JNJFOC-20100807387

PATIENT
  Sex: Female
  Weight: 57 kg

DRUGS (30)
  1. DUROTEP MT [Suspect]
     Indication: CANCER PAIN
     Route: 062
  2. ONEALFA [Concomitant]
     Indication: PRODUCT USED FOR UNKNOWN INDICATION
     Route: 048
  3. CODEINE PHOSPHATE [Concomitant]
     Indication: CANCER PAIN
     Route: 048
  4. CODEINE PHOSPHATE [Concomitant]
     Route: 048
  5. CODEINE PHOSPHATE [Concomitant]
     Route: 048
  6. CODEINE PHOSPHATE [Concomitant]
     Indication: SPINAL COLUMN STENOSIS
     Route: 048
  7. CODEINE PHOSPHATE [Concomitant]
     Route: 048
  8. CODEINE PHOSPHATE [Concomitant]
     Route: 048
  9. CODEINE PHOSPHATE [Concomitant]
     Route: 048
  10. CODEINE PHOSPHATE [Concomitant]
     Route: 048
  11. CODEINE PHOSPHATE [Concomitant]
     Indication: PERINEAL PAIN
     Route: 048
  12. CODEINE PHOSPHATE [Concomitant]
     Route: 048
  13. CODEINE PHOSPHATE [Concomitant]
     Route: 048
  14. CODEINE PHOSPHATE [Concomitant]
     Route: 048
  15. CODEINE PHOSPHATE [Concomitant]
     Route: 048
  16. PAXIL [Concomitant]
     Indication: PRODUCT USED FOR UNKNOWN INDICATION
     Route: 048
  17. DEPAS [Concomitant]
     Indication: PRODUCT USED FOR UNKNOWN INDICATION
     Route: 048
  18. RISPERDAL [Concomitant]
     Indication: PRODUCT USED FOR UNKNOWN INDICATION
     Route: 048
  19. PURSENNID [Concomitant]
     Indication: CONSTIPATION
     Route: 048
  20. MAGNESIUM OXIDE [Concomitant]
     Indication: PRODUCT USED FOR UNKNOWN INDICATION
     Route: 048
  21. METHYCOBAL [Concomitant]
     Indication: PRODUCT USED FOR UNKNOWN INDICATION
     Route: 048
  22. TAKEPRON [Concomitant]
     Indication: PRODUCT USED FOR UNKNOWN INDICATION
     Route: 048
  23. SHAKUYAKU-K ANZO-TO [Concomitant]
     Indication: PRODUCT USED FOR UNKNOWN INDICATION
     Route: 048
  24. DICLOFENAC SODIUM [Concomitant]
     Indication: PRODUCT USED FOR UNKNOWN INDICATION
     Route: 048
  25. MUCOSTA [Concomitant]
     Indication: PRODUCT USED FOR UNKNOWN INDICATION
     Route: 048
  26. BONALON [Concomitant]
     Indication: PRODUCT USED FOR UNKNOWN INDICATION
     Route: 048
  27. LEXOTAN [Concomitant]
     Indication: PRODUCT USED FOR UNKNOWN INDICATION
     Route: 048
  28. GOREISAN [Concomitant]
     Indication: SPINAL COLUMN STENOSIS
     Route: 048
  29. GOREISAN [Concomitant]
     Indication: PERINEAL PAIN
     Route: 048
  30. GOREISAN [Concomitant]
     Indication: OEDEMA
     Route: 048

REACTIONS (10)
  - ALTERED STATE OF CONSCIOUSNESS [None]
  - BLOOD PRESSURE DECREASED [None]
  - EATING DISORDER [None]
  - GAIT DISTURBANCE [None]
  - NARCOTIC INTOXICATION [None]
  - OXYGEN SATURATION DECREASED [None]
  - PNEUMONIA ASPIRATION [None]
  - RESPIRATORY DEPRESSION [None]
  - URINARY TRACT INFECTION [None]
  - VOMITING [None]
